FAERS Safety Report 16771203 (Version 1)
Quarter: 2019Q3

REPORT INFORMATION
  Report Type: Spontaneous
  Country: US (occurrence: US)
  Receive Date: 20190904
  Receipt Date: 20190904
  Transmission Date: 20191005
  Serious: Yes (Disabling, Other)
  Sender: FDA-Public Use
  Company Number: US-AMGEN-USASP2019140604

PATIENT
  Sex: Male

DRUGS (1)
  1. NEUPOGEN [Suspect]
     Active Substance: FILGRASTIM
     Indication: NEUTROPENIA
     Dosage: 1 MICROGRAM/KILOGRAM, QD
     Route: 065

REACTIONS (9)
  - Blindness unilateral [Unknown]
  - Eye infection toxoplasmal [Unknown]
  - Bone pain [Unknown]
  - Dengue fever [Unknown]
  - Sinusitis [Unknown]
  - Pneumonia [Unknown]
  - Immunodeficiency congenital [Unknown]
  - Vitritis [Unknown]
  - Off label use [Unknown]
